FAERS Safety Report 6986531-9 (Version None)
Quarter: 2010Q3

REPORT INFORMATION
  Report Type: 
  Country: None (occurrence: None)
  Receive Date: 20100827
  Receipt Date: 20090914
  Transmission Date: 20110219
  Serious: Yes (Other)
  Sender: FDA-Public Use
  Company Number: AMAG200900016

PATIENT
  Age: 36 Year
  Sex: Female
  Weight: 75.7 kg

DRUGS (2)
  1. FERAHEME [Suspect]
     Indication: IRON DEFICIENCY ANAEMIA
     Dosage: 30 MG, SINGLE, INTRAVENOUS
     Route: 042
     Dates: start: 20090914, end: 20090914
  2. SYNTHROID [Concomitant]

REACTIONS (6)
  - BACK PAIN [None]
  - BLOOD PRESSURE DECREASED [None]
  - CHEST PAIN [None]
  - DYSPNOEA [None]
  - FLUSHING [None]
  - PAIN IN EXTREMITY [None]
